FAERS Safety Report 7252290-8 (Version None)
Quarter: 2011Q1

REPORT INFORMATION
  Report Type: 
  Country: None (occurrence: None)
  Receive Date: 20110129
  Receipt Date: 20100111
  Transmission Date: 20110831
  Serious: Yes (Other)
  Sender: FDA-Public Use
  Company Number: US-ABBOTT-10P-163-0618623-00

PATIENT
  Sex: Male
  Weight: 86.26 kg

DRUGS (3)
  1. ASACOL [Concomitant]
     Indication: COLITIS ULCERATIVE
     Route: 048
  2. HUMIRA [Suspect]
     Indication: PSORIASIS
     Route: 058
     Dates: start: 20080331, end: 20091019
  3. HUMIRA [Suspect]
     Indication: COLITIS ULCERATIVE

REACTIONS (3)
  - PYREXIA [None]
  - LYMPHADENOPATHY [None]
  - HODGKIN'S DISEASE [None]
